FAERS Safety Report 10186741 (Version 3)
Quarter: 2014Q4

REPORT INFORMATION
  Report Type: Report from Study
  Country: US (occurrence: US)
  Receive Date: 20140521
  Receipt Date: 20141203
  Transmission Date: 20150528
  Serious: Yes (Hospitalization)
  Sender: FDA-Public Use
  Company Number: PHEH2014US009757

PATIENT
  Age: 54 Year
  Sex: Female
  Weight: 61.68 kg

DRUGS (5)
  1. GABAPENTIN. [Concomitant]
     Active Substance: GABAPENTIN
  2. NABUMETONE. [Concomitant]
     Active Substance: NABUMETONE
  3. BACLOFEN. [Concomitant]
     Active Substance: BACLOFEN
  4. GILENYA [Suspect]
     Active Substance: FINGOLIMOD HYDROCHLORIDE
     Indication: RELAPSING-REMITTING MULTIPLE SCLEROSIS
     Dosage: 0.5 MG, QD
     Route: 048
     Dates: start: 20140102
  5. BONIVA [Concomitant]
     Active Substance: IBANDRONATE SODIUM
     Indication: PRODUCT USED FOR UNKNOWN INDICATION
     Route: 065

REACTIONS (7)
  - Back injury [Unknown]
  - Lymphocyte count decreased [Unknown]
  - Back pain [Unknown]
  - Influenza [Not Recovered/Not Resolved]
  - Myalgia [Unknown]
  - Central nervous system lesion [Unknown]
  - Arthralgia [Not Recovered/Not Resolved]

NARRATIVE: CASE EVENT DATE: 20140413
